FAERS Safety Report 19170435 (Version 1)
Quarter: 2021Q2

REPORT INFORMATION
  Report Type: Spontaneous
  Country: US (occurrence: US)
  Receive Date: 20210422
  Receipt Date: 20210422
  Transmission Date: 20210717
  Serious: No
  Sender: FDA-Public Use
  Company Number: US-MYLANLABS-2021M1022317

PATIENT
  Sex: Female

DRUGS (1)
  1. TRAVOPROST OPHTHALMIC SOLUTION USP [Suspect]
     Active Substance: TRAVOPROST
     Indication: PRODUCT USED FOR UNKNOWN INDICATION
     Dosage: UNK
     Route: 047

REACTIONS (1)
  - Dry eye [Unknown]
